FAERS Safety Report 25063308 (Version 1)
Quarter: 2025Q1

REPORT INFORMATION
  Report Type: Spontaneous
  Country: US (occurrence: None)
  Receive Date: 20250310
  Receipt Date: 20250310
  Transmission Date: 20250409
  Serious: Yes (Hospitalization)
  Sender: FDA-CTU
  Company Number: None

PATIENT
  Sex: Female

DRUGS (3)
  1. METHOTREXATE [Suspect]
     Active Substance: METHOTREXATE
     Indication: Ankylosing spondylitis
     Dosage: 15 MG ONCE A WEEK ORAL
     Route: 048
     Dates: start: 202403
  2. SIMPOIN SMARTJECT [Concomitant]
  3. FOLIC ACID [Concomitant]
     Active Substance: FOLIC ACID

REACTIONS (4)
  - Dizziness [None]
  - Dizziness [None]
  - Communication disorder [None]
  - Malnutrition [None]
